FAERS Safety Report 4417574-7 (Version None)
Quarter: 2004Q3

REPORT INFORMATION
  Report Type: 
  Country: None (occurrence: None)
  Receive Date: 20040803
  Receipt Date: 20040728
  Transmission Date: 20050211
  Serious: Yes (Death)
  Sender: FDA-Public Use
  Company Number: 54756/438

PATIENT
  Sex: Male

DRUGS (1)
  1. LEVONORGESTREL [Suspect]
     Dosage: 2 DOSES
     Dates: start: 20030210, end: 20030210

REACTIONS (33)
  - APGAR SCORE LOW [None]
  - BLOOD PRESSURE IMMEASURABLE [None]
  - BRADYCARDIA [None]
  - CARDIOMEGALY [None]
  - CHOLESTASIS [None]
  - COAGULOPATHY [None]
  - CONGENITAL ANOMALY [None]
  - CONGENITAL ATRIAL SEPTAL DEFECT [None]
  - CONGENITAL PULMONARY ARTERY ANOMALY [None]
  - CONGENITAL VENTRICULAR SEPTAL DEFECT [None]
  - CONVULSION [None]
  - DRUG EXPOSURE DURING PREGNANCY [None]
  - ELECTROENCEPHALOGRAM ABNORMAL [None]
  - GALLBLADDER ANOMALY CONGENITAL [None]
  - GENERAL PHYSICAL HEALTH DETERIORATION [None]
  - HEPATIC FAILURE [None]
  - HEPATIC FIBROSIS [None]
  - HYPOTENSION [None]
  - INFARCTION [None]
  - MULTI-ORGAN FAILURE [None]
  - NEONATAL ASPIRATION [None]
  - PANCREATIC DISORDER [None]
  - PATENT DUCTUS ARTERIOSUS [None]
  - PERICARDIAL DISEASE [None]
  - PNEUMOTHORAX [None]
  - PULMONARY VASCULAR RESISTANCE ABNORMALITY [None]
  - PULSE ABSENT [None]
  - PUPIL FIXED [None]
  - RENAL FAILURE [None]
  - RESPIRATORY ARREST [None]
  - SEPSIS [None]
  - STREPTOCOCCAL SEPSIS [None]
  - TRACHEO-OESOPHAGEAL FISTULA [None]
